FAERS Safety Report 9422400 (Version 1)
Quarter: 2013Q3

REPORT INFORMATION
  Report Type: Spontaneous
  Country: US (occurrence: US)
  Receive Date: 20130726
  Receipt Date: 20130726
  Transmission Date: 20140515
  Serious: No
  Sender: FDA-Public Use
  Company Number: US-BAYER-2013-088427

PATIENT
  Age: 79 Year
  Sex: Female
  Weight: 50 kg

DRUGS (2)
  1. ESTRADIOL HEMIHYDRATE (PATCH) [Suspect]
     Indication: HYSTERECTOMY
     Dosage: 0.1 MG, UNK
     Route: 062
     Dates: start: 20130713, end: 20130714
  2. NEXIUM [Concomitant]
     Dosage: 40 MG, UNK

REACTIONS (2)
  - Product adhesion issue [None]
  - Pruritus [Recovered/Resolved with Sequelae]
